FAERS Safety Report 8260482-4 (Version None)
Quarter: 2012Q2

REPORT INFORMATION
  Report Type: 
  Country: None (occurrence: None)
  Receive Date: 20120404
  Receipt Date: 20120312
  Transmission Date: 20120825
  Serious: No
  Sender: FDA-Public Use
  Company Number: DE-BAYER-2012-016486

PATIENT
  Age: 46 Year
  Sex: Female
  Weight: 57 kg

DRUGS (3)
  1. BETASERON [Suspect]
     Indication: PRODUCT USED FOR UNKNOWN INDICATION
  2. LEVOTHYROXINE SODIUM [Concomitant]
     Dosage: UNK
  3. VITAMIN B3 [Concomitant]
     Dosage: UNK

REACTIONS (2)
  - ABDOMINAL PAIN UPPER [None]
  - ABDOMINAL DISTENSION [None]
